FAERS Safety Report 9224310 (Version 1)
Quarter: 2013Q2

REPORT INFORMATION
  Report Type: Spontaneous
  Country: BR (occurrence: BR)
  Receive Date: 20130411
  Receipt Date: 20130411
  Transmission Date: 20140414
  Serious: Yes (Other)
  Sender: FDA-Public Use
  Company Number: BR-ACCORD-017143

PATIENT
  Age: 49 Year
  Sex: Female
  Weight: 88 kg

DRUGS (1)
  1. IRINOTECAN HYDROCHLORIDE [Suspect]
     Indication: CHEMOTHERAPY
     Dosage: 120MG TO 500MG OF SG DILUTED 5% IN 90 MIN INFUSION
     Route: 042
     Dates: start: 20130226, end: 20130226

REACTIONS (2)
  - Erythema [Recovered/Resolved]
  - Abdominal pain upper [Recovered/Resolved]
